FAERS Safety Report 10029427 (Version 2)
Quarter: 2014Q2

REPORT INFORMATION
  Report Type: Report from Study
  Country: JP (occurrence: JP)
  Receive Date: 20140322
  Receipt Date: 20140402
  Transmission Date: 20141212
  Serious: Yes (Hospitalization)
  Sender: FDA-Public Use
  Company Number: PHHO2014JP003809

PATIENT
  Age: 71 Year
  Sex: Female
  Weight: 58 kg

DRUGS (18)
  1. ACLASTA/ZOLEDRONATE [Suspect]
     Indication: OSTEOPOROSIS
     Dosage: UNK
     Route: 041
     Dates: start: 20121119
  2. ACLASTA/ZOLEDRONATE [Suspect]
     Dosage: UNK
     Dates: start: 20131118
  3. WADACALCIUM [Concomitant]
     Indication: OSTEOPOROSIS
     Dosage: 4 DF, UNK
     Route: 048
     Dates: start: 20121013, end: 20140307
  4. WADACALCIUM [Concomitant]
     Dosage: 4 DF, UNK
     Route: 048
     Dates: start: 20140312
  5. ALINAMIN F [Concomitant]
     Indication: VITAMIN SUPPLEMENTATION
     Dosage: 75 MG, UNK
     Route: 048
     Dates: start: 20121003, end: 20140307
  6. ALINAMIN F [Concomitant]
     Dosage: 75 MG, UNK
     Route: 048
     Dates: start: 20140313
  7. SEPAZON [Concomitant]
     Indication: ANXIETY DISORDER
     Dosage: 3 MG, UNK
     Route: 048
     Dates: start: 19970408, end: 20140307
  8. SEPAZON [Concomitant]
     Dosage: 3 MG, UNK
     Route: 048
     Dates: start: 20140313
  9. SULPIRIDE [Concomitant]
     Indication: GASTRITIS PROPHYLAXIS
     Dosage: 300 MG, UNK
     Route: 048
     Dates: start: 19970408, end: 20140307
  10. SULPIRIDE [Concomitant]
     Dosage: 300 MG, UNK
     Route: 048
     Dates: start: 20140313
  11. TOWARAT L [Concomitant]
     Indication: HYPERTENSION
     Dosage: 10 MG, UNK
     Route: 048
     Dates: end: 20140307
  12. TOWARAT L [Concomitant]
     Dosage: UNK
     Dates: start: 20140313
  13. LIPIDIL [Concomitant]
     Indication: HYPERLIPIDAEMIA
     Dosage: 40 MG, UNK
     Route: 048
     Dates: start: 20120810, end: 20140307
  14. LIPIDIL [Concomitant]
     Dosage: 40 MG, UNK
     Route: 048
     Dates: start: 20140313
  15. DIQUAS [Concomitant]
     Indication: DRY EYE
     Dosage: UNK
     Route: 047
     Dates: start: 20121206, end: 20140307
  16. DIQUAS [Concomitant]
     Dosage: UNK
     Route: 047
     Dates: start: 20140313
  17. TRYPTANOL                               /AUS/ [Concomitant]
     Indication: ANXIETY DISORDER
     Dosage: 30 MG, UNK
     Route: 048
     Dates: start: 19970408, end: 20140307
  18. TRYPTANOL                               /AUS/ [Concomitant]
     Dosage: 30 MG, UNK
     Route: 048
     Dates: start: 20140313

REACTIONS (1)
  - Pulmonary embolism [Recovered/Resolved]
